FAERS Safety Report 5632337-2 (Version None)
Quarter: 2008Q1

REPORT INFORMATION
  Report Type: 
  Country: None (occurrence: None)
  Receive Date: 20080220
  Receipt Date: 20080208
  Transmission Date: 20080703
  Serious: Yes (Hospitalization)
  Sender: FDA-Public Use
  Company Number: US-WYE-H02561808

PATIENT
  Sex: Male
  Weight: 42.15 kg

DRUGS (4)
  1. TEMSIROLIMUS [Suspect]
     Indication: NEUROBLASTOMA
     Route: 042
     Dates: start: 20071012, end: 20071012
  2. TEMSIROLIMUS [Suspect]
     Route: 042
     Dates: start: 20071026, end: 20071026
  3. TEMSIROLIMUS [Suspect]
     Route: 042
     Dates: start: 20071105, end: 20071105
  4. TEMSIROLIMUS [Suspect]
     Route: 042
     Dates: start: 20071119

REACTIONS (3)
  - HYPOTENSION [None]
  - INFECTION [None]
  - PYREXIA [None]
